FAERS Safety Report 9032394 (Version 1)
Quarter: 2013Q1

REPORT INFORMATION
  Report Type: Spontaneous
  Country: GB (occurrence: None)
  Receive Date: 20130108
  Receipt Date: 20130108
  Transmission Date: 20140127
  Serious: Yes (Hospitalization)
  Sender: FDA-Public Use
  Company Number: GER/UKI/13/0027272

PATIENT
  Age: 92 Year
  Sex: Female

DRUGS (5)
  1. CIPROFLOXACIN (CIPROFLOXACIN) [Suspect]
     Indication: MORAXELLA INFECTION
     Dosage: 500 MG, 2 IN 1 D, ORAL
     Route: 048
     Dates: start: 20110505, end: 20110510
  2. OMEPRAZOLE (OMEPRAZOLE) [Suspect]
     Indication: PRODUCT USED FOR UNKNOWN INDICATION
  3. AMOXICILLIN (AMOXICILLIN) [Suspect]
     Indication: PRODUCT USED FOR UNKNOWN INDICATION
     Dosage: 500 MG, 3 IN 1 D, ORAL
     Route: 048
     Dates: start: 20100610, end: 20100617
  4. CO-AMOXICLAV [Suspect]
     Indication: PRODUCT USED FOR UNKNOWN INDICATION
     Dosage: 1.2 GM, 3 IN 1 D, INTRAVENOUS
     Route: 042
     Dates: start: 20110504, end: 20110504
  5. CIPROFLOXACIN (CIPROFLOXACIN) [Suspect]
     Indication: PRODUCT USED FOR UNKNOWN INDICATION
     Dosage: 400 MG, 2 IN 1 D, INTRAVENOUS
     Route: 042

REACTIONS (10)
  - Abdominal tenderness [None]
  - C-reactive protein increased [None]
  - Diarrhoea [None]
  - Abdominal distension [None]
  - Neutrophilia [None]
  - Pneumonia [None]
  - Vomiting [None]
  - Clostridium difficile infection [None]
  - Norovirus test positive [None]
  - Moraxella test positive [None]
